FAERS Safety Report 7580882-5 (Version None)
Quarter: 2011Q2

REPORT INFORMATION
  Report Type: 
  Country: None (occurrence: None)
  Receive Date: 20110629
  Receipt Date: 20110614
  Transmission Date: 20111010
  Serious: Yes (Hospitalization)
  Sender: FDA-Public Use
  Company Number: ES-WATSON-2011-09498

PATIENT
  Age: 49 Year
  Sex: Male

DRUGS (1)
  1. TOPIRAMATE [Suspect]
     Indication: SUICIDE ATTEMPT
     Dosage: 24 G, SINGLE
     Route: 048

REACTIONS (7)
  - HEART RATE INCREASED [None]
  - CONVULSION [None]
  - METABOLIC ACIDOSIS [None]
  - HYPOTENSION [None]
  - HYPERVENTILATION [None]
  - DEPRESSED LEVEL OF CONSCIOUSNESS [None]
  - INTENTIONAL OVERDOSE [None]
